FAERS Safety Report 13261474 (Version 1)
Quarter: 2017Q1

REPORT INFORMATION
  Report Type: Report from Study
  Country: US (occurrence: US)
  Receive Date: 20170222
  Receipt Date: 20170222
  Transmission Date: 20170428
  Serious: Yes (Hospitalization, Other)
  Sender: FDA-Public Use
  Company Number: US-GILEAD-2017-0259215

PATIENT
  Age: 66 Year
  Sex: Female

DRUGS (20)
  1. DILTIAZEM. [Concomitant]
     Active Substance: DILTIAZEM
  2. REVATIO [Concomitant]
     Active Substance: SILDENAFIL CITRATE
  3. PLAVIX [Concomitant]
     Active Substance: CLOPIDOGREL BISULFATE
  4. LEVOTHYROXINE. [Concomitant]
     Active Substance: LEVOTHYROXINE
  5. LEVAQUIN [Concomitant]
     Active Substance: LEVOFLOXACIN
  6. HUMULIN R [Concomitant]
     Active Substance: INSULIN HUMAN
  7. LASIX [Concomitant]
     Active Substance: FUROSEMIDE
  8. TRAMADOL. [Concomitant]
     Active Substance: TRAMADOL
  9. KLOR-CON [Concomitant]
     Active Substance: POTASSIUM CHLORIDE
  10. LANTUS [Concomitant]
     Active Substance: INSULIN GLARGINE
  11. AMBIEN [Concomitant]
     Active Substance: ZOLPIDEM TARTRATE
  12. AMBRISENTAN [Suspect]
     Active Substance: AMBRISENTAN
     Indication: PULMONARY HYPERTENSION
     Dosage: 10 MG, QD
     Route: 065
     Dates: start: 20111209
  13. SINGULAIR [Concomitant]
     Active Substance: MONTELUKAST SODIUM
  14. WELCHOL [Concomitant]
     Active Substance: COLESEVELAM HYDROCHLORIDE
  15. ZETIA [Concomitant]
     Active Substance: EZETIMIBE
  16. ADVAIR HFA [Concomitant]
     Active Substance: FLUTICASONE PROPIONATE\SALMETEROL XINAFOATE
  17. BYETTA [Concomitant]
     Active Substance: EXENATIDE
  18. PRAVACHOL [Concomitant]
     Active Substance: PRAVASTATIN SODIUM
  19. GABAPENTIN. [Concomitant]
     Active Substance: GABAPENTIN
  20. PRILOSEC [Concomitant]
     Active Substance: OMEPRAZOLE MAGNESIUM

REACTIONS (3)
  - Gastrointestinal haemorrhage [Recovered/Resolved]
  - Gastrointestinal ulcer [Unknown]
  - Fatigue [Unknown]

NARRATIVE: CASE EVENT DATE: 20170208
